FAERS Safety Report 13129425 (Version 1)
Quarter: 2017Q1

REPORT INFORMATION
  Report Type: Report from Study
  Country: None (occurrence: BR)
  Receive Date: 20170119
  Receipt Date: 20170119
  Transmission Date: 20170428
  Serious: Yes (Hospitalization, Other)
  Sender: FDA-Public Use
  Company Number: BR-ABBVIE-15K-020-1398883-00

PATIENT
  Age: 65 Year
  Sex: Male
  Weight: 83 kg

DRUGS (13)
  1. HUMIRA [Suspect]
     Active Substance: ADALIMUMAB
     Indication: CROHN^S DISEASE
     Dosage: LOADING DOSE, WEEK ZERO
     Route: 058
     Dates: start: 20150409, end: 20150409
  2. BENICAR ANLO [Concomitant]
     Active Substance: AMLODIPINE BESYLATE\OLMESARTAN MEDOXOMIL
     Indication: BLOOD PRESSURE MANAGEMENT
     Route: 048
     Dates: start: 201501
  3. MAGNESIUM PIDOLATE [Concomitant]
     Active Substance: MAGNESIUM PIDOLATE
     Indication: PRODUCT USED FOR UNKNOWN INDICATION
     Route: 048
  4. AZATHIOPRINE. [Concomitant]
     Active Substance: AZATHIOPRINE
     Indication: CROHN^S DISEASE
     Route: 048
  5. MESALAZINE [Concomitant]
     Active Substance: MESALAMINE
     Indication: CROHN^S DISEASE
     Route: 048
     Dates: start: 2014
  6. HUMIRA [Suspect]
     Active Substance: ADALIMUMAB
     Dosage: LOADING DOSE WEEK TWO
     Route: 058
     Dates: start: 201504, end: 201504
  7. HIGROTON [Concomitant]
     Active Substance: CHLORTHALIDONE
     Indication: BLOOD PRESSURE MANAGEMENT
     Route: 048
     Dates: start: 201501
  8. HUMIRA [Suspect]
     Active Substance: ADALIMUMAB
     Route: 058
  9. ETHAMBUTOL [Concomitant]
     Active Substance: ETHAMBUTOL HYDROCHLORIDE
     Indication: MYOSITIS
     Route: 048
     Dates: start: 20150505
  10. IMURAN [Concomitant]
     Active Substance: AZATHIOPRINE
     Indication: CROHN^S DISEASE
     Route: 048
  11. CIPIDE [Concomitant]
     Indication: DIABETES MELLITUS
     Route: 048
     Dates: start: 201501
  12. SELOZOK [Concomitant]
     Active Substance: METOPROLOL SUCCINATE
     Indication: ARRHYTHMIA
     Route: 048
     Dates: start: 201501
  13. GLIFAGE [Concomitant]
     Active Substance: METFORMIN HYDROCHLORIDE
     Indication: BLOOD GLUCOSE ABNORMAL
     Route: 048
     Dates: start: 2014

REACTIONS (8)
  - Prostatic specific antigen abnormal [Not Recovered/Not Resolved]
  - Cerebrospinal fluid leakage [Unknown]
  - Tuberculosis [Recovering/Resolving]
  - Myositis [Unknown]
  - Back pain [Recovering/Resolving]
  - Pain [Unknown]
  - Spinal pain [Not Recovered/Not Resolved]
  - Inappropriate schedule of drug administration [Unknown]

NARRATIVE: CASE EVENT DATE: 2015
